FAERS Safety Report 5926633-9 (Version None)
Quarter: 2008Q4

REPORT INFORMATION
  Report Type: 
  Country: None (occurrence: None)
  Receive Date: 20081022
  Receipt Date: 20081016
  Transmission Date: 20090506
  Serious: Yes (Other)
  Sender: FDA-Public Use
  Company Number: B0542582A

PATIENT
  Age: 65 Year
  Sex: Female
  Weight: 82 kg

DRUGS (18)
  1. MELPHALAN [Suspect]
     Indication: MULTIPLE MYELOMA
     Dosage: 36MG PER DAY
     Route: 048
     Dates: start: 20070502
  2. BLINDED TRIAL MEDICATION [Suspect]
     Indication: MULTIPLE MYELOMA
     Dosage: 10MG PER DAY
     Route: 048
     Dates: start: 20070502
  3. PREDNISONE TAB [Suspect]
     Indication: MULTIPLE MYELOMA
     Dosage: 2MGK PER DAY
     Route: 048
     Dates: start: 20070502
  4. TRAMAL [Concomitant]
     Indication: PAIN
     Route: 048
     Dates: start: 20070411
  5. ZOMETA [Concomitant]
     Indication: PROPHYLAXIS
     Route: 042
     Dates: start: 20070403
  6. SIMVASTATIN [Concomitant]
     Route: 048
     Dates: start: 20070411
  7. RAMIPRIL [Concomitant]
     Route: 048
     Dates: start: 20070411
  8. BISOPROLOL FUMARATE [Concomitant]
     Route: 048
     Dates: start: 20070411
  9. ESOMEPRAZOLE MAGNESIUM [Concomitant]
     Route: 048
     Dates: start: 20070411
  10. COLECALCIFEROL [Concomitant]
     Indication: OSTEOPOROSIS POSTMENOPAUSAL
     Route: 048
     Dates: start: 20070411
  11. METAMIZOLE [Concomitant]
     Indication: PAIN
     Route: 048
     Dates: start: 20070411
  12. CIPROFLOXACIN [Concomitant]
     Indication: URINARY TRACT INFECTION
     Route: 048
     Dates: start: 20070315, end: 20070410
  13. ASPIRIN [Concomitant]
     Indication: PROPHYLAXIS
     Route: 048
     Dates: start: 20070509
  14. GRANOCYTE [Concomitant]
     Indication: NEUTROPENIA
     Route: 042
     Dates: start: 20070516, end: 20070516
  15. NEULASTA [Concomitant]
     Indication: NEUTROPENIA
     Route: 058
     Dates: start: 20070518, end: 20070518
  16. TAVANIC [Concomitant]
     Indication: PROPHYLAXIS
     Route: 048
     Dates: start: 20070516
  17. DIFLUCAN [Concomitant]
     Indication: PROPHYLAXIS
     Route: 048
     Dates: start: 20070516, end: 20070620
  18. ACYCLOVIR [Concomitant]
     Indication: PROPHYLAXIS
     Route: 048
     Dates: start: 20070516, end: 20070620

REACTIONS (4)
  - ACCIDENTAL OVERDOSE [None]
  - ANAEMIA [None]
  - NEUTROPENIA [None]
  - THROMBOCYTOPENIA [None]
